FAERS Safety Report 7237638-2 (Version None)
Quarter: 2011Q1

REPORT INFORMATION
  Report Type: 
  Country: None (occurrence: None)
  Receive Date: 20110121
  Receipt Date: 20110118
  Transmission Date: 20110831
  Serious: Yes (Death, Hospitalization)
  Sender: FDA-Public Use
  Company Number: HU-ROCHE-696210

PATIENT
  Sex: Male
  Weight: 74 kg

DRUGS (38)
  1. BEVACIZUMAB [Suspect]
     Dosage: LAST DOSE PRIOR TO SAE: 16 FEBRUARY 2010
     Route: 042
     Dates: end: 20100323
  2. GEMCITABINE [Suspect]
     Route: 042
     Dates: start: 20091117
  3. GEMCITABINE [Suspect]
     Dosage: FREQUENCY: 2XEVERY THREE WEEK, FORM: INFUSION
     Route: 042
  4. CARBOPLATIN [Suspect]
     Indication: NON-SMALL CELL LUNG CANCER
     Dosage: FORM: INFUSION;
     Route: 042
     Dates: start: 20091109
  5. CARBOPLATIN [Suspect]
     Route: 042
  6. KALIUM-R [Concomitant]
     Dates: start: 20100202
  7. MEDROL [Concomitant]
     Dosage: INDICATION: THROMBOCYTOPENIA
     Dates: start: 20100202
  8. EPREX [Concomitant]
     Indication: ANAEMIA
     Dates: start: 20091127, end: 20091220
  9. NEULASTA [Concomitant]
     Indication: PROPHYLAXIS
     Dates: start: 20100217
  10. CIFRAN [Concomitant]
     Indication: BRONCHOPNEUMONIA
     Dates: start: 20091020, end: 20091024
  11. ONDANSETRON [Concomitant]
     Indication: PROPHYLAXIS
     Dates: start: 20091109
  12. CONCOR [Concomitant]
     Dates: start: 20091215
  13. NEUPOGEN [Concomitant]
     Indication: GRANULOCYTOPENIA
     Dates: start: 20100202, end: 20100203
  14. GEMCITABINE [Suspect]
     Indication: NON-SMALL CELL LUNG CANCER
     Dosage: FORM INFUSION, ON DAY 1 AND DAY 8; FREQUENCY: 1XDAILY;
     Route: 042
     Dates: start: 20091109, end: 20091117
  15. GEMCITABINE [Suspect]
     Dosage: LAST DOSE PRIOR TO SAE: 01 APRIL 2010
     Route: 042
     Dates: end: 20100401
  16. CARBOPLATIN [Suspect]
     Dosage: LAST DOSE PRIOR TO SAE: 23 MARCH 2010, FREQUENCY: 1XDAILY
     Route: 042
     Dates: end: 20100323
  17. AUGMENTIN [Concomitant]
     Dates: start: 20100322, end: 20100323
  18. NEORECORMON [Concomitant]
     Indication: ANAEMIA
     Dates: start: 20091215
  19. SERETIDE [Concomitant]
     Dosage: DRUG REPORTED AS SERETIDE 500/50; DOSE REPORTED AS 1000 MG/ 100 MG, 500/ 50
     Dates: start: 20091104, end: 20100407
  20. SINECOD [Concomitant]
     Indication: BRONCHOSCOPY
     Dates: start: 20091022, end: 20091022
  21. HYDROMORPHONE HCL [Concomitant]
     Indication: CHEST PAIN
     Dates: start: 20100104
  22. MEDROL [Concomitant]
     Dates: start: 20091020, end: 20091029
  23. KALIUM-R [Concomitant]
     Indication: PROPHYLAXIS
     Dates: start: 20091020, end: 20091026
  24. MEDROL [Concomitant]
     Indication: GRANULOCYTOPENIA
     Dosage: INDICATION: COPD ACUTE EXACERBATION
     Dates: start: 20091020, end: 20091029
  25. MEDROL [Concomitant]
     Dates: start: 20091116, end: 20091117
  26. BEVACIZUMAB [Suspect]
     Dosage: LAST DOSE PRIOR TO SAE: 16 FEBRUARY 2010,INFUSION, FREQUENCY: 1XDAILY
     Route: 042
  27. MEGESIN [Concomitant]
     Dosage: INDICATION: LOSS OF WEIGHT (CACHEXIA)
     Dates: start: 20091109, end: 20100407
  28. AUGMENTIN [Concomitant]
     Indication: BRONCHOPNEUMONIA
     Dates: start: 20091020, end: 20091026
  29. KALIUM-R [Concomitant]
     Dosage: INDICATION: PROPHYLAXIS OF HYPOKALEMIA CAUSED BY USING OF MEDROL
     Dates: start: 20091116, end: 20091117
  30. GEMCITABINE [Suspect]
     Dosage: LAST DOSE OF IV GEMCITABINE PRIOR TO EVENT ON 16 FEBRUARY 2010.
     Route: 042
     Dates: end: 20100223
  31. SPIRIVA [Concomitant]
     Dates: start: 20091104, end: 20100407
  32. BERODUAL [Concomitant]
     Dosage: DRUG - BERODUAL INHALATION
     Dates: start: 20091020, end: 20091029
  33. BEVACIZUMAB [Suspect]
     Indication: NON-SMALL CELL LUNG CANCER
     Dosage: FREQUENCY: 1X, FORM INFUSION;
     Route: 042
     Dates: start: 20091109
  34. BEVACIZUMAB [Suspect]
     Dosage: FREQUENCY AS PER PROTOCOL
     Route: 042
  35. GEMCITABINE [Suspect]
     Route: 042
     Dates: start: 20100304
  36. CARBOPLATIN [Suspect]
     Route: 042
  37. LIDOCAINE HYDROCHLORIDE IN PLASTIC CONTAINER [Concomitant]
     Indication: BRONCHOSCOPY
     Dates: start: 20091022, end: 20091022
  38. NEUPOGEN [Concomitant]
     Dates: start: 20100403

REACTIONS (6)
  - GRANULOCYTOPENIA [None]
  - ANAEMIA [None]
  - PNEUMONIA [None]
  - THROMBOCYTOPENIA [None]
  - NEUTROPENIA [None]
  - PYOTHORAX [None]
